FAERS Safety Report 6246946-3 (Version None)
Quarter: 2009Q2

REPORT INFORMATION
  Report Type: 
  Country: None (occurrence: None)
  Receive Date: 20090626
  Receipt Date: 20090617
  Transmission Date: 20091009
  Serious: Yes (Other)
  Sender: FDA-Public Use
  Company Number: US-JNJFOC-20090606672

PATIENT
  Sex: Male
  Weight: 104.33 kg

DRUGS (13)
  1. REMICADE [Suspect]
     Indication: CROHN'S DISEASE
     Dosage: ON INFLIXIMAB ABOUT 2 1/2 YEARS
     Route: 042
  2. BENADRYL [Concomitant]
     Indication: PREMEDICATION
  3. PREDNISONE [Concomitant]
     Indication: PREMEDICATION
  4. METHADONE [Concomitant]
     Indication: PAIN
  5. PERCOCET [Concomitant]
     Indication: PAIN
  6. TETRACYCLINE [Concomitant]
  7. LOPERAMIDE HYDROCHLORIDE [Concomitant]
  8. PENTASA [Concomitant]
  9. ALLOPURINOL [Concomitant]
  10. BELLADONNA [Concomitant]
  11. CELEBREX [Concomitant]
  12. CALCIUM CITRATE [Concomitant]
  13. VITAMIN B-12 [Concomitant]

REACTIONS (3)
  - CHEST PAIN [None]
  - TROPONIN INCREASED [None]
  - URTICARIA [None]
